FAERS Safety Report 13438500 (Version 3)
Quarter: 2017Q2

REPORT INFORMATION
  Report Type: Spontaneous
  Country: US (occurrence: US)
  Receive Date: 20170413
  Receipt Date: 20170525
  Transmission Date: 20170830
  Serious: No
  Sender: FDA-Public Use
  Company Number: US-PFIZER INC-1001548

PATIENT
  Age: 52 Year
  Sex: Female
  Weight: 87.27 kg

DRUGS (3)
  1. EPINEPHRINE/LIDOCAINE HYDROCHLORIDE [Suspect]
     Active Substance: EPINEPHRINE\LIDOCAINE HYDROCHLORIDE
     Indication: LOCAL ANAESTHESIA
     Dosage: 2 ML,AS INDICATED
     Route: 058
     Dates: start: 20110726, end: 20110726
  2. MARCAINE [Concomitant]
     Active Substance: BUPIVACAINE HYDROCHLORIDE
     Indication: ANAESTHESIA PROCEDURE
     Dosage: 2 ML, AS INDICATED
     Route: 058
     Dates: start: 20110726, end: 20110726
  3. SODIUM BICARBONATE. [Concomitant]
     Active Substance: SODIUM BICARBONATE
     Indication: ANAESTHESIA PROCEDURE
     Dosage: 0.5 ML,AS INDICATED
     Route: 058
     Dates: start: 20110726, end: 20110726

REACTIONS (1)
  - Drug effect decreased [Recovered/Resolved]

NARRATIVE: CASE EVENT DATE: 20110726
